FAERS Safety Report 5398404-6 (Version None)
Quarter: 2007Q3

REPORT INFORMATION
  Report Type: 
  Country: None (occurrence: None)
  Receive Date: 20070726
  Receipt Date: 20070326
  Transmission Date: 20080115
  Serious: No
  Sender: FDA-Public Use
  Company Number: US-AMGEN-KDL216769

PATIENT
  Sex: Female

DRUGS (12)
  1. PROCRIT [Suspect]
     Indication: RENAL FAILURE CHRONIC
     Dates: start: 20060101
  2. IRON [Concomitant]
  3. COZAAR [Concomitant]
  4. AMIODARONE HCL [Concomitant]
  5. SIMVASTATIN [Concomitant]
  6. CLONIDINE [Concomitant]
  7. UNSPECIFIED MEDICATION [Concomitant]
  8. SYNTHROID [Concomitant]
  9. LASIX [Concomitant]
  10. LABETALOL HCL [Concomitant]
  11. NITROGLYCERIN [Concomitant]
  12. ISOSORBIDE DINITRATE [Concomitant]

REACTIONS (2)
  - ABDOMINAL PAIN UPPER [None]
  - NAUSEA [None]
